FAERS Safety Report 4878557-6 (Version None)
Quarter: 2006Q1

REPORT INFORMATION
  Report Type: 
  Country: None (occurrence: None)
  Receive Date: 20060112
  Receipt Date: 20051103
  Transmission Date: 20060701
  Serious: Yes (Other)
  Sender: FDA-Public Use
  Company Number: JP-SOLVAY-00305003732

PATIENT
  Age: 25 Year
  Sex: Female
  Weight: 45 kg

DRUGS (1)
  1. MESALAMINE [Suspect]
     Indication: COLITIS ULCERATIVE
     Dosage: DAILY DOSE:  UNKNOWN
     Route: 048
     Dates: start: 20031215, end: 20040108

REACTIONS (4)
  - CLOSTRIDIUM COLITIS [None]
  - HYPOXIA [None]
  - PLEURISY [None]
  - PNEUMONIA [None]
